FAERS Safety Report 4873058-3 (Version None)
Quarter: 2005Q4

REPORT INFORMATION
  Report Type: 
  Country: None (occurrence: None)
  Receive Date: 20051201
  Receipt Date: 20050715
  Transmission Date: 20060501
  Serious: No
  Sender: FDA-Public Use
  Company Number: 2005PV000390

PATIENT
  Age: 65 Year
  Sex: Female
  Weight: 74.8435 kg

DRUGS (4)
  1. BYETTA [Suspect]
     Dosage: 5 MCG; BID; SC
     Route: 058
     Dates: start: 20050601
  2. LANTUS [Concomitant]
  3. LOTREL [Concomitant]
  4. GLIPIZIDE ER [Concomitant]

REACTIONS (1)
  - INJECTION SITE BRUISING [None]
